FAERS Safety Report 4736407-2 (Version None)
Quarter: 2005Q3

REPORT INFORMATION
  Report Type: 
  Country: None (occurrence: None)
  Receive Date: 20050802
  Receipt Date: 20050721
  Transmission Date: 20060218
  Serious: Yes (Other)
  Sender: FDA-Public Use
  Company Number: DK-2005-009416

PATIENT
  Age: 22 Year
  Sex: Female

DRUGS (1)
  1. YASMIN [Suspect]
     Indication: ORAL CONTRACEPTION
     Dosage: 1 TAB(S), 1X/21DAYS, ORAL
     Route: 048
     Dates: start: 20041027, end: 20050601

REACTIONS (2)
  - GALACTORRHOEA [None]
  - PROLACTINOMA [None]
